FAERS Safety Report 22627611 (Version 1)
Quarter: 2023Q2

REPORT INFORMATION
  Report Type: Spontaneous
  Country: US (occurrence: US)
  Receive Date: 20230622
  Receipt Date: 20230622
  Transmission Date: 20230721
  Serious: No
  Sender: FDA-Public Use
  Company Number: US-BRISTOL-MYERS SQUIBB COMPANY-2022-118270

PATIENT
  Age: 76 Year
  Sex: Female
  Weight: 78.471 kg

DRUGS (1)
  1. POMALYST [Suspect]
     Active Substance: POMALIDOMIDE
     Indication: Plasma cell myeloma
     Dosage: 3 WEEK , 1 WEEK OFF
     Route: 048

REACTIONS (3)
  - Pain [Unknown]
  - Asthenia [Unknown]
  - Gait inability [Unknown]
